FAERS Safety Report 10370338 (Version 1)
Quarter: 2014Q3

REPORT INFORMATION
  Report Type: Report from Study
  Country: US (occurrence: US)
  Receive Date: 20140808
  Receipt Date: 20140808
  Transmission Date: 20150326
  Serious: Yes (Other)
  Sender: FDA-Public Use
  Company Number: US-JNJFOC-20140800029

PATIENT
  Age: 43 Year
  Sex: Female

DRUGS (10)
  1. INVOKANA [Suspect]
     Active Substance: CANAGLIFLOZIN
     Indication: TYPE 2 DIABETES MELLITUS
     Route: 048
     Dates: start: 201312, end: 201403
  2. PROTOPIC [Suspect]
     Active Substance: TACROLIMUS
     Indication: PRURITUS GENITAL
     Route: 061
     Dates: start: 2014
  3. SIMVASTATIN. [Concomitant]
     Active Substance: SIMVASTATIN
  4. DEXILANT [Concomitant]
     Active Substance: DEXLANSOPRAZOLE
     Indication: GASTROOESOPHAGEAL REFLUX DISEASE
  5. LOSARTAN [Concomitant]
     Active Substance: LOSARTAN
  6. INVOKANA [Suspect]
     Active Substance: CANAGLIFLOZIN
     Indication: TYPE 2 DIABETES MELLITUS
     Route: 048
     Dates: start: 201403
  7. PROTOPIC [Suspect]
     Active Substance: TACROLIMUS
     Indication: SEBORRHOEIC DERMATITIS
     Route: 061
     Dates: start: 2014
  8. ZYRTEC [Concomitant]
     Active Substance: CETIRIZINE HYDROCHLORIDE
  9. BABY ASPIRIN [Concomitant]
     Active Substance: ASPIRIN
  10. INHALER NOS [Concomitant]
     Active Substance: UNSPECIFIED INGREDIENT
     Indication: ASTHMA

REACTIONS (7)
  - Blood glucose fluctuation [Recovered/Resolved]
  - Seborrhoeic dermatitis [Not Recovered/Not Resolved]
  - Off label use [Not Recovered/Not Resolved]
  - Skin exfoliation [Not Recovered/Not Resolved]
  - Pruritus genital [Not Recovered/Not Resolved]
  - Thirst [Not Recovered/Not Resolved]
  - Urine output increased [Not Recovered/Not Resolved]

NARRATIVE: CASE EVENT DATE: 201312
